FAERS Safety Report 9204252 (Version 1)
Quarter: 2013Q2

REPORT INFORMATION
  Report Type: Spontaneous
  Country: US (occurrence: None)
  Receive Date: 20130401
  Receipt Date: 20130401
  Transmission Date: 20140414
  Serious: Yes (Other)
  Sender: FDA-Public Use
  Company Number: None

PATIENT
  Age: 62 Year
  Sex: Female

DRUGS (1)
  1. LAMOTRIGINE 100MG [Suspect]
     Indication: EPILEPSY
     Dosage: 2.5 TABS
     Route: 048

REACTIONS (3)
  - Pyrexia [None]
  - Chills [None]
  - Rash generalised [None]
